FAERS Safety Report 12507878 (Version 4)
Quarter: 2017Q2

REPORT INFORMATION
  Report Type: Report from Study
  Country: US (occurrence: US)
  Receive Date: 20160629
  Receipt Date: 20170510
  Transmission Date: 20170830
  Serious: Yes (Other)
  Sender: FDA-Public Use
  Company Number: PHEH2016US016093

PATIENT
  Age: 30 Year
  Sex: Female

DRUGS (4)
  1. EXTAVIA [Suspect]
     Active Substance: INTERFERON BETA-1B
     Dosage: WEEK 3-4: 0.125 MG (0.5 ML), QOD
     Route: 058
  2. EXTAVIA [Suspect]
     Active Substance: INTERFERON BETA-1B
     Dosage: WEEKS 7+: 0.25 MG (1 ML), QOD
     Route: 058
  3. EXTAVIA [Suspect]
     Active Substance: INTERFERON BETA-1B
     Indication: MULTIPLE SCLEROSIS
     Dosage: WEEKS 1-2: 0.0625 MG (0.25 ML), QOD
     Route: 058
     Dates: start: 20160414
  4. EXTAVIA [Suspect]
     Active Substance: INTERFERON BETA-1B
     Dosage: WEEKS 5-6: 0.1875 MG (0.75 ML), QOD
     Route: 058

REACTIONS (15)
  - Injection site pruritus [Unknown]
  - Urticaria [Unknown]
  - Injection site pain [Unknown]
  - Agitation [Unknown]
  - Feeling abnormal [Unknown]
  - Muscular weakness [Unknown]
  - Mood altered [Unknown]
  - Asthenia [Unknown]
  - Injection site bruising [Unknown]
  - Injection site urticaria [Recovered/Resolved]
  - Neck mass [Unknown]
  - Fatigue [Unknown]
  - Headache [Unknown]
  - Injection site haemorrhage [Unknown]
  - Product preparation error [Unknown]

NARRATIVE: CASE EVENT DATE: 201608
